FAERS Safety Report 13814084 (Version 2)
Quarter: 2019Q1

REPORT INFORMATION
  Report Type: Spontaneous
  Country: PL (occurrence: PL)
  Receive Date: 20170731
  Receipt Date: 20190208
  Transmission Date: 20190417
  Serious: Yes (Hospitalization, Other)
  Sender: FDA-Public Use
  Company Number: PL-ACCORD-056534

PATIENT
  Age: 51 Year
  Sex: Male

DRUGS (3)
  1. CISPLATIN. [Suspect]
     Active Substance: CISPLATIN
     Indication: TONGUE NEOPLASM
     Dosage: CISPLATIN 180 MG 1 DAY
  2. DOCETAXEL. [Suspect]
     Active Substance: DOCETAXEL
     Indication: TONGUE NEOPLASM
     Dosage: 140 MG 1 DAY
  3. FLUOROURACIL. [Suspect]
     Active Substance: FLUOROURACIL
     Indication: LYMPHADENOPATHY
     Dosage: CONTINUOUS INFUSION 96 HOURS

REACTIONS (2)
  - Drug ineffective [Unknown]
  - Acute kidney injury [Recovering/Resolving]
